FAERS Safety Report 6839456-3 (Version None)
Quarter: 2010Q3

REPORT INFORMATION
  Report Type: 
  Country: None (occurrence: None)
  Receive Date: 20100714
  Receipt Date: 20090706
  Transmission Date: 20110219
  Serious: No
  Sender: FDA-Public Use
  Company Number: A0789385A

PATIENT
  Age: 29 Year
  Sex: Female

DRUGS (3)
  1. FLOVENT [Suspect]
     Indication: ASTHMA
     Dosage: 1PUFF PER DAY
     Route: 055
     Dates: start: 20070101
  2. MENEST [Concomitant]
  3. ZYRTEC [Concomitant]

REACTIONS (5)
  - FEELING JITTERY [None]
  - HEADACHE [None]
  - HUNGER [None]
  - MEDICATION ERROR [None]
  - WEIGHT INCREASED [None]
